FAERS Safety Report 8365400-6 (Version None)
Quarter: 2012Q2

REPORT INFORMATION
  Report Type: 
  Country: None (occurrence: None)
  Receive Date: 20120516
  Receipt Date: 20120502
  Transmission Date: 20120825
  Serious: Yes (Hospitalization)
  Sender: FDA-Public Use
  Company Number: CHPA2012US010344

PATIENT
  Age: 78 Year
  Sex: Female

DRUGS (3)
  1. DIURETICS [Concomitant]
     Indication: CARDIAC FAILURE CONGESTIVE
  2. DRUG THERAPY NOS [Concomitant]
  3. PERDIEM OVERNIGHT RELIEF PILLS [Suspect]
     Indication: BOWEL MOVEMENT IRREGULARITY
     Dosage: 3 DF, EACH NIGHT
     Route: 048
     Dates: start: 20110101

REACTIONS (3)
  - INCORRECT DOSE ADMINISTERED [None]
  - MYOCARDIAL INFARCTION [None]
  - INCORRECT DRUG ADMINISTRATION DURATION [None]
